FAERS Safety Report 4843877-8 (Version None)
Quarter: 2005Q4

REPORT INFORMATION
  Report Type: 
  Country: None (occurrence: None)
  Receive Date: 20051130
  Receipt Date: 20051130
  Transmission Date: 20060501
  Serious: Yes (Disabling)
  Sender: FDA-Public Use
  Company Number: None

PATIENT
  Sex: Male
  Weight: 92.5338 kg

DRUGS (1)
  1. VANCOMYCIN [Suspect]
     Indication: WOUND INFECTION STAPHYLOCOCCAL
     Dosage: 1.25 GRAMS  EVERY 12 HOUR   IV DRIP
     Route: 041
     Dates: start: 20051117, end: 20051128

REACTIONS (1)
  - BLOOD CREATININE INCREASED [None]
